FAERS Safety Report 5292141-4 (Version None)
Quarter: 2007Q2

REPORT INFORMATION
  Report Type: 
  Country: None (occurrence: None)
  Receive Date: 20070410
  Receipt Date: 20070402
  Transmission Date: 20071010
  Serious: Yes (Hospitalization)
  Sender: FDA-Public Use
  Company Number: KW-GLAXOSMITHKLINE-B0078205A

PATIENT
  Age: 18 Month
  Sex: Male

DRUGS (6)
  1. CEFUROXIME [Suspect]
     Indication: LOBAR PNEUMONIA
     Dosage: 100MGK PER DAY
     Route: 042
  2. SALBUTAMOL [Concomitant]
     Indication: ASTHMA
     Route: 055
  3. IPRATROPIUM BROMIDE [Concomitant]
     Indication: ASTHMA
  4. HYDROCORTISONE [Concomitant]
     Indication: ASTHMA
     Route: 042
  5. SODIUM CROMOGLYCATE [Concomitant]
  6. CROMOLYN SODIUM [Concomitant]
     Indication: ASTHMA
     Route: 065

REACTIONS (5)
  - ABDOMINAL DISTENSION [None]
  - DIARRHOEA [None]
  - ILEUS PARALYTIC [None]
  - VOMITING [None]
  - X-RAY ABNORMAL [None]
